FAERS Safety Report 10155645 (Version 1)
Quarter: 2014Q2

REPORT INFORMATION
  Report Type: Spontaneous
  Country: US (occurrence: US)
  Receive Date: 20140506
  Receipt Date: 20140506
  Transmission Date: 20141212
  Serious: Yes (Disabling)
  Sender: FDA-Public Use
  Company Number: US-GLAXOSMITHKLINE-A1071214A

PATIENT
  Sex: Male

DRUGS (2)
  1. VOTRIENT [Suspect]
     Indication: SARCOMA
     Dosage: 600MG PER DAY
     Route: 048
     Dates: start: 201401, end: 20140414
  2. NO CONCURRENT MEDICATION [Concomitant]

REACTIONS (1)
  - Treatment failure [Unknown]
